FAERS Safety Report 10384878 (Version 7)
Quarter: 2015Q2

REPORT INFORMATION
  Report Type: Report from Study
  Country: US (occurrence: US)
  Receive Date: 20140814
  Receipt Date: 20150626
  Transmission Date: 20150821
  Serious: Yes (Hospitalization, Other)
  Sender: FDA-Public Use
  Company Number: US-SA-2013SA120405

PATIENT
  Sex: Female

DRUGS (3)
  1. AUBAGIO [Suspect]
     Active Substance: TERIFLUNOMIDE
     Indication: MULTIPLE SCLEROSIS
     Route: 048
     Dates: start: 20130305, end: 20140708
  2. SOLU-MEDROL [Concomitant]
     Active Substance: METHYLPREDNISOLONE SODIUM SUCCINATE
     Route: 042
     Dates: start: 199901
  3. AUBAGIO [Suspect]
     Active Substance: TERIFLUNOMIDE
     Indication: MULTIPLE SCLEROSIS
     Route: 048
     Dates: start: 20140920

REACTIONS (6)
  - Urinary tract infection [Unknown]
  - Peripheral coldness [Unknown]
  - Clostridium difficile infection [Recovering/Resolving]
  - Central venous catheterisation [Unknown]
  - Product packaging issue [Unknown]
  - Cystitis [Recovering/Resolving]

NARRATIVE: CASE EVENT DATE: 2014
